FAERS Safety Report 13573250 (Version 6)
Quarter: 2017Q3

REPORT INFORMATION
  Report Type: Report from Study
  Country: US (occurrence: US)
  Receive Date: 20170523
  Receipt Date: 20170810
  Transmission Date: 20171127
  Serious: Yes (Other)
  Sender: FDA-Public Use
  Company Number: US-BRISTOL-MYERS SQUIBB COMPANY-BMS-2017-043626

PATIENT
  Sex: Female

DRUGS (1)
  1. NIVOLUMAB [Suspect]
     Active Substance: NIVOLUMAB
     Indication: RENAL CANCER
     Dosage: UNK
     Route: 042

REACTIONS (17)
  - Dyspnoea [Not Recovered/Not Resolved]
  - Weight decreased [Unknown]
  - Oxygen therapy [Unknown]
  - Wound treatment [Unknown]
  - Back pain [Not Recovered/Not Resolved]
  - Dysphonia [Unknown]
  - Pain [Unknown]
  - Bronchitis [Not Recovered/Not Resolved]
  - Pruritus [Unknown]
  - Oropharyngeal pain [Unknown]
  - Odynophagia [Unknown]
  - Pleural infection [Unknown]
  - Fatigue [Unknown]
  - Productive cough [Unknown]
  - Cough [Not Recovered/Not Resolved]
  - Haemoptysis [Unknown]
  - Hospitalisation [Unknown]
